FAERS Safety Report 24294407 (Version 2)
Quarter: 2024Q4

REPORT INFORMATION
  Report Type: Spontaneous
  Country: JP (occurrence: JP)
  Receive Date: 20240906
  Receipt Date: 20241218
  Transmission Date: 20250115
  Serious: Yes (Other)
  Sender: JOURNEY MEDICAL CORPORATION
  Company Number: JP-JOURNEY MEDICAL CORPORATION-2024JNY00202

PATIENT
  Age: 2 Decade
  Sex: Female

DRUGS (5)
  1. QBREXZA [Suspect]
     Active Substance: GLYCOPYRRONIUM TOSYLATE
     Dosage: 1 DF (USED 2-3 TIMES A WEEK (VAGUE FREQUENCY))
     Route: 061
  2. OLOPATADINE HYDROCHLORIDE [Concomitant]
     Active Substance: OLOPATADINE HYDROCHLORIDE
     Indication: Pruritus
     Route: 048
  3. CELESTAMINE [Concomitant]
     Active Substance: BETAMETHASONE\DEXCHLORPHENIRAMINE MALEATE
     Indication: Pruritus
     Route: 048
  4. LOXOPROFEN SODIUM [Concomitant]
     Active Substance: LOXOPROFEN SODIUM
     Indication: Pain
     Route: 061
  5. ACETAMINOPHEN [Concomitant]
     Active Substance: ACETAMINOPHEN
     Indication: Dysmenorrhoea
     Route: 048

REACTIONS (1)
  - Epilepsy [Not Recovered/Not Resolved]

NARRATIVE: CASE EVENT DATE: 20240822
